FAERS Safety Report 12411268 (Version 1)
Quarter: 2016Q2

REPORT INFORMATION
  Report Type: Spontaneous
  Country: US (occurrence: None)
  Receive Date: 20160526
  Receipt Date: 20160526
  Transmission Date: 20160815
  Serious: No
  Sender: FDA-Public Use
  Company Number: None

PATIENT
  Age: 75 Year
  Sex: Male
  Weight: 66.68 kg

DRUGS (4)
  1. TAMSULOSIN HCL [Suspect]
     Active Substance: TAMSULOSIN
     Indication: PROSTATIC DISORDER
     Dosage: 1 PILL
     Route: 048
     Dates: start: 20160421, end: 20160505
  2. VALPROIC ACID. [Concomitant]
     Active Substance: VALPROIC ACID
  3. SIMVASTIN [Concomitant]
     Active Substance: SIMVASTATIN
  4. FINISTARIDE [Concomitant]

REACTIONS (3)
  - Pain [None]
  - Sleep disorder due to general medical condition, insomnia type [None]
  - Product lot number issue [None]

NARRATIVE: CASE EVENT DATE: 20160504
